FAERS Safety Report 21045914 (Version 1)
Quarter: 2022Q3

REPORT INFORMATION
  Report Type: Spontaneous
  Country: GR (occurrence: GR)
  Receive Date: 20220706
  Receipt Date: 20220706
  Transmission Date: 20221026
  Serious: Yes (Other)
  Sender: FDA-Public Use
  Company Number: GR-BAUSCH-BL-2022-016398

PATIENT
  Age: 86 Year
  Sex: Female

DRUGS (3)
  1. BROMFENAC [Suspect]
     Active Substance: BROMFENAC SODIUM
     Indication: Postoperative care
     Route: 065
  2. CHLORAMPHENICOL [Concomitant]
     Active Substance: CHLORAMPHENICOL
     Indication: Postoperative care
  3. DEXAMETHASONE [Concomitant]
     Active Substance: DEXAMETHASONE
     Indication: Postoperative care

REACTIONS (1)
  - Ulcerative keratitis [Recovered/Resolved]
